FAERS Safety Report 24065926 (Version 1)
Quarter: 2024Q3

REPORT INFORMATION
  Report Type: Spontaneous
  Country: US (occurrence: US)
  Receive Date: 20240709
  Receipt Date: 20240709
  Transmission Date: 20241016
  Serious: No
  Sender: VIRTUS PHARMACEUTICALS
  Company Number: US-VIRTUS PHARMACEUTICALS, LLC-2023VTS00018

PATIENT
  Age: 59 Year
  Sex: Female

DRUGS (5)
  1. PROMETRIUM [Suspect]
     Active Substance: PROGESTERONE
     Indication: Menopause
     Dosage: 400 MG, 1X/DAY, NIGHTLY
     Dates: start: 202307
  2. PROMETRIUM [Suspect]
     Active Substance: PROGESTERONE
     Indication: Insomnia
  3. PROGESTERONE [Suspect]
     Active Substance: PROGESTERONE
     Indication: Menopause
  4. PROGESTERONE [Suspect]
     Active Substance: PROGESTERONE
     Indication: Insomnia
  5. ESTROGENS [Concomitant]
     Active Substance: ESTROGENS
     Dosage: 1 DOSAGE FORM, PATCH, 2X/WEEK

REACTIONS (6)
  - Rash [Recovered/Resolved]
  - Feeling abnormal [Recovered/Resolved]
  - Abdominal pain upper [Not Recovered/Not Resolved]
  - Product odour abnormal [Not Recovered/Not Resolved]
  - Product quality issue [Not Recovered/Not Resolved]
  - Poor quality product administered [Not Recovered/Not Resolved]

NARRATIVE: CASE EVENT DATE: 20230714
